FAERS Safety Report 9520737 (Version 1)
Quarter: 2013Q1

REPORT INFORMATION
  Report Type: Spontaneous
  Country: US (occurrence: None)
  Receive Date: 20130305
  Receipt Date: 20130305
  Transmission Date: 20140127
  Serious: Yes (Hospitalization)
  Sender: FDA-Public Use
  Company Number: 163-21880-12033308

PATIENT
  Age: 77 Year
  Sex: Female

DRUGS (21)
  1. REVLIMID [Suspect]
     Indication: PLASMA CELL MYELOMA
     Dosage: 15 MG, EVERY OTHER DAY FOR 3WKS, 1WK OFF, PO?07/07/2011 - TEMPORARILY INTERRUPTED
     Dates: start: 20110707
  2. VITAMINS [Concomitant]
  3. AMBIEN (ZOLPIDEM TARTRATE) [Concomitant]
  4. ASA (ACETYLSALICYLIC ACID) [Concomitant]
  5. COMBIVENT [Concomitant]
  6. DEXAMETHASONE [Concomitant]
  7. LANTUS (INSULIN GLARGINE) [Concomitant]
  8. LASIX (FUROSEMIDE) [Concomitant]
  9. LORTAB (VICODIN) [Concomitant]
  10. LUMIGAN (BIMATOPROST) [Concomitant]
  11. METOPROLOL SUCCINATE [Concomitant]
  12. NEXIUM [Concomitant]
  13. PATANOL (OLOPATADINE HYDROCHLORIDE) [Concomitant]
  14. RENA-VITE (NEPHROVITE) [Concomitant]
  15. ZEMPLAR (PARICALCITOL) [Concomitant]
  16. ZOLPIDEM [Concomitant]
  17. LIPITOR (ATORVASTATIN) [Concomitant]
  18. FLEXERIL (CYCLOBENZAPRINE HYDROCHLORIDE) [Concomitant]
  19. PROCRIT [Concomitant]
  20. SOLU-CORTEF (HYDROCORTISONE SODIUM SUCCINATE) [Concomitant]
  21. LORCET (VICODIN) [Concomitant]

REACTIONS (8)
  - Neuropathy peripheral [None]
  - Dry skin [None]
  - Pruritus [None]
  - Fatigue [None]
  - Dyspnoea [None]
  - Rash erythematous [None]
  - Back pain [None]
  - Drug dose omission [None]
